FAERS Safety Report 12830625 (Version 7)
Quarter: 2016Q4

REPORT INFORMATION
  Report Type: Report from Study
  Country: MX (occurrence: MX)
  Receive Date: 20161007
  Receipt Date: 20161215
  Transmission Date: 20170207
  Serious: Yes (Life-Threatening, Hospitalization)
  Sender: FDA-Public Use
  Company Number: MX-B.I. PHARMACEUTICALS,INC./RIDGEFIELD-2016-BI-43654BI

PATIENT
  Age: 70 Year
  Sex: Male
  Weight: 67 kg

DRUGS (21)
  1. ENLANTAN [Concomitant]
     Indication: MYOCARDIAL ISCHAEMIA
     Route: 048
     Dates: start: 20160406
  2. FERROUS SULFATE. [Concomitant]
     Active Substance: FERROUS SULFATE
     Indication: ERYTHROPENIA
     Dosage: DAILY DOSE: 5MG/1
     Route: 048
     Dates: start: 20160715
  3. PRAZOSIN [Concomitant]
     Active Substance: PRAZOSIN
     Indication: MYOCARDIAL ISCHAEMIA
     Dosage: DAILY DOSE: 1MG/4
     Route: 048
     Dates: start: 20160608
  4. PLACEBO [Suspect]
     Active Substance: UNSPECIFIED INGREDIENT
     Indication: TYPE 2 DIABETES MELLITUS
     Route: 048
     Dates: start: 20140721, end: 20160704
  5. OMEPRAZOL [Concomitant]
     Active Substance: OMEPRAZOLE
     Indication: PROPHYLAXIS
     Route: 048
     Dates: start: 20160406, end: 20160608
  6. ATORVASTATIN [Concomitant]
     Active Substance: ATORVASTATIN
     Indication: CARDIOVASCULAR EVENT PROPHYLAXIS
     Route: 048
     Dates: start: 20160406
  7. CALCITRIOL. [Concomitant]
     Active Substance: CALCITRIOL
     Indication: HYPOCALCAEMIA
     Dosage: DAILY DOSE: 0.25MCG/1
     Route: 048
     Dates: start: 20160715
  8. CALCIUM CARBONATE. [Concomitant]
     Active Substance: CALCIUM CARBONATE
     Indication: NUTRITIONAL SUPPLEMENTATION
     Dosage: DAILY DOSE: 500MG/3
     Route: 048
     Dates: start: 20160715
  9. INSULIN GLARGINE [Concomitant]
     Active Substance: INSULIN GLARGINE
     Indication: TYPE 2 DIABETES MELLITUS
     Dosage: DAILY DOSE: 8U/1
     Route: 058
     Dates: start: 20160715
  10. AMLODIPINE [Concomitant]
     Active Substance: AMLODIPINE BESYLATE
     Indication: MYOCARDIAL ISCHAEMIA
     Route: 048
     Dates: start: 20160608
  11. OMEPRAZOL [Concomitant]
     Active Substance: OMEPRAZOLE
     Route: 048
     Dates: start: 20160608
  12. SERTRALINE [Concomitant]
     Active Substance: SERTRALINE HYDROCHLORIDE
     Indication: DEPRESSION
     Route: 048
     Dates: start: 20160608
  13. LOSARTAN. [Concomitant]
     Active Substance: LOSARTAN
     Indication: HYPERTENSION
     Route: 048
     Dates: start: 20160406
  14. COMPLEJO B [Concomitant]
     Indication: ANAEMIA
     Dosage: STRENGTH: 1
     Route: 048
     Dates: start: 20160108
  15. FUROSEMIDE. [Concomitant]
     Active Substance: FUROSEMIDE
     Indication: DIABETIC NEPHROPATHY
     Route: 048
     Dates: start: 2014
  16. INSILUNA NPH [Concomitant]
     Indication: DIABETES MELLITUS
     Route: 058
     Dates: start: 20160608
  17. FUMARATO FERROSO [Concomitant]
     Indication: ANAEMIA
     Route: 048
     Dates: start: 20160608
  18. PRAZOSIN [Concomitant]
     Active Substance: PRAZOSIN
     Indication: HYPERTENSION
     Dosage: DAILY DOSE: 1MG/3
     Route: 048
     Dates: start: 20160715
  19. VITAMIN B COMPLEX [Concomitant]
     Active Substance: CYANOCOBALAMIN\DEXPANTHENOL\NIACINAMIDE\PYRIDOXINE HYDROCHLORIDE\RIBOFLAVIN 5^-PHOSPHATE SODIUM\THIAMINE HYDROCHLORIDE\VITAMIN B COMPLEX
     Indication: DIABETIC NEUROPATHY
     Dosage: DAILY DOSE: UNK/1
     Route: 048
     Dates: start: 20160715
  20. GABAPENTIN. [Concomitant]
     Active Substance: GABAPENTIN
     Indication: DIABETIC NEPHROPATHY
     Route: 048
     Dates: start: 20160406
  21. AMLODIPINE [Concomitant]
     Active Substance: AMLODIPINE BESYLATE
     Indication: HYPERTENSION
     Dosage: DAILY DOSE: 5MG/2
     Route: 048
     Dates: start: 20160715

REACTIONS (11)
  - Renal failure [Not Recovered/Not Resolved]
  - Pneumonia [Recovered/Resolved]
  - Hyperkalaemia [Recovered/Resolved]
  - Pneumonia [Recovered/Resolved]
  - Acute pulmonary oedema [Recovered/Resolved]
  - Hyperosmolar state [Recovered/Resolved]
  - Gastrointestinal haemorrhage [Recovered/Resolved]
  - Renal failure [Not Recovered/Not Resolved]
  - Electrolyte imbalance [Recovered/Resolved]
  - Chest wall tumour [Not Recovered/Not Resolved]
  - Urinary tract infection [Recovered/Resolved]

NARRATIVE: CASE EVENT DATE: 20160513
